FAERS Safety Report 4550156-5 (Version None)
Quarter: 2005Q1

REPORT INFORMATION
  Report Type: 
  Country: None (occurrence: None)
  Receive Date: 20050107
  Receipt Date: 20041229
  Transmission Date: 20050727
  Serious: Yes (Other)
  Sender: FDA-Public Use
  Company Number: US-2004-037276

PATIENT
  Age: 24 Year
  Sex: Female

DRUGS (1)
  1. BETASERON [Suspect]
     Indication: MULTIPLE SCLEROSIS
     Dosage: 6.6 MIU, EVERY 2D, SUBCUTANEOUS
     Route: 058
     Dates: start: 20040624

REACTIONS (5)
  - ABDOMINAL PAIN LOWER [None]
  - ACCIDENTAL OVERDOSE [None]
  - ANOREXIA [None]
  - EPISTAXIS [None]
  - WEIGHT DECREASED [None]
